FAERS Safety Report 12277763 (Version 4)
Quarter: 2016Q2

REPORT INFORMATION
  Report Type: Report from Study
  Country: US (occurrence: US)
  Receive Date: 20160418
  Receipt Date: 20160628
  Transmission Date: 20160815
  Serious: Yes (Death, Hospitalization)
  Sender: FDA-Public Use
  Company Number: US-BIOGEN-2016BI00219413

PATIENT
  Age: 67 Year
  Sex: Male

DRUGS (1)
  1. TYSABRI [Suspect]
     Active Substance: NATALIZUMAB
     Indication: MULTIPLE SCLEROSIS
     Route: 042
     Dates: start: 20150730, end: 20160211

REACTIONS (6)
  - Ammonia abnormal [Unknown]
  - Hepatic failure [Fatal]
  - Pneumonia [Unknown]
  - Infection [Unknown]
  - Diabetes mellitus [Not Recovered/Not Resolved]
  - Opportunistic infection [Unknown]

NARRATIVE: CASE EVENT DATE: 201603
